FAERS Safety Report 9164788 (Version 2)
Quarter: 2013Q1

REPORT INFORMATION
  Report Type: Spontaneous
  Country: FR (occurrence: None)
  Receive Date: 20130226
  Receipt Date: 20130328
  Transmission Date: 20140127
  Serious: Yes (Disabling, Other)
  Sender: FDA-Public Use
  Company Number: FR-1196659

PATIENT
  Age: 73 Year
  Sex: Male

DRUGS (2)
  1. TOBRADEX [Suspect]
     Indication: DACRYOCYSTITIS
     Dosage: (2 GTT QID OPHATHALMIC)
     Route: 047
     Dates: start: 20120625
  2. KARDEGIC [Concomitant]

REACTIONS (2)
  - Deafness [None]
  - Ototoxicity [None]
